FAERS Safety Report 15842904 (Version 2)
Quarter: 2019Q1

REPORT INFORMATION
  Report Type: Spontaneous
  Country: US (occurrence: US)
  Receive Date: 20190118
  Receipt Date: 20190201
  Transmission Date: 20190417
  Serious: No
  Sender: FDA-Public Use
  Company Number: US-ALLERGAN-1901041US

PATIENT
  Age: 75 Year
  Sex: Male

DRUGS (2)
  1. LINZESS [Suspect]
     Active Substance: LINACLOTIDE
     Indication: GASTROINTESTINAL MOTILITY DISORDER
     Dosage: 72 ?G, QD
     Route: 048
     Dates: start: 2018, end: 2018
  2. LINZESS [Suspect]
     Active Substance: LINACLOTIDE
     Indication: BOWEL MOVEMENT IRREGULARITY
     Dosage: 72 ?G, QD
     Route: 048
     Dates: start: 20181218, end: 201901

REACTIONS (5)
  - Haemorrhoidal haemorrhage [Recovered/Resolved]
  - Off label use [Unknown]
  - Product dose omission [Unknown]
  - Drug ineffective for unapproved indication [Unknown]
  - Product physical issue [Unknown]

NARRATIVE: CASE EVENT DATE: 2018
